FAERS Safety Report 5289864-X (Version None)
Quarter: 2007Q2

REPORT INFORMATION
  Report Type: 
  Country: None (occurrence: None)
  Receive Date: 20070406
  Receipt Date: 20070312
  Transmission Date: 20071010
  Serious: Yes (Other)
  Sender: FDA-Public Use
  Company Number: US-SANOFI-SYNTHELABO-A03200702308

PATIENT
  Sex: Female

DRUGS (3)
  1. AMBIEN [Suspect]
     Indication: INSOMNIA
     Dosage: UNK
     Route: 048
     Dates: start: 20021101, end: 20030306
  2. LIPITOR [Concomitant]
     Dosage: UNK
     Route: 065
  3. TETRACYCLINE [Concomitant]
     Dosage: UNK
     Route: 065

REACTIONS (3)
  - MULTIPLE FRACTURES [None]
  - ROAD TRAFFIC ACCIDENT [None]
  - SOMNOLENCE [None]
